APPROVED DRUG PRODUCT: ACETAZOLAMIDE SODIUM
Active Ingredient: ACETAZOLAMIDE SODIUM
Strength: EQ 500MG BASE/VIAL
Dosage Form/Route: INJECTABLE;INJECTION
Application: A200880 | Product #001 | TE Code: AP
Applicant: MYLAN ASI LLC
Approved: May 9, 2012 | RLD: No | RS: No | Type: RX